FAERS Safety Report 18952177 (Version 2)
Quarter: 2025Q2

REPORT INFORMATION
  Report Type: Spontaneous
  Country: IT (occurrence: IT)
  Receive Date: 20210301
  Receipt Date: 20250627
  Transmission Date: 20250717
  Serious: Yes (Hospitalization, Other)
  Sender: AUROBINDO
  Company Number: IT-PFM-2021-01415

PATIENT
  Age: 4 Year
  Sex: Female

DRUGS (4)
  1. AZITHROMYCIN [Suspect]
     Active Substance: AZITHROMYCIN
     Indication: Prophylaxis
     Route: 065
  2. AMOXICILLIN\CLAVULANIC ACID [Concomitant]
     Active Substance: AMOXICILLIN\CLAVULANIC ACID
     Indication: Bronchitis
     Route: 065
  3. ACYCLOVIR [Concomitant]
     Active Substance: ACYCLOVIR
     Indication: Product used for unknown indication
     Dosage: 10 MILLIGRAM, 3 TIMES A DAY
     Route: 042
  4. DEXAMETHASONE [Concomitant]
     Active Substance: DEXAMETHASONE
     Indication: Product used for unknown indication
     Dosage: 0.2 MILLIGRAM/KILOGRAM, 3 TIMES A DAY
     Route: 065

REACTIONS (12)
  - Cytotoxic lesions of corpus callosum [Recovered/Resolved]
  - Blindness [Recovered/Resolved]
  - Cough [Recovered/Resolved]
  - Abdominal pain [Recovered/Resolved]
  - Rash maculo-papular [Recovered/Resolved]
  - Sinusitis [Recovered/Resolved]
  - Gait disturbance [Recovered/Resolved]
  - Mastoiditis [Recovered/Resolved]
  - Decreased appetite [Recovered/Resolved]
  - Pyrexia [Recovered/Resolved]
  - Off label use [Unknown]
  - Product use in unapproved indication [Unknown]
